FAERS Safety Report 17853811 (Version 1)
Quarter: 2020Q2

REPORT INFORMATION
  Report Type: Spontaneous
  Country: US (occurrence: US)
  Receive Date: 20200602
  Receipt Date: 20200602
  Transmission Date: 20200714
  Serious: No
  Sender: FDA-Public Use
  Company Number: US-GLENMARK PHARMACEUTICALS-2020GMK047326

PATIENT

DRUGS (2)
  1. VITAMINS NOS [Concomitant]
     Active Substance: VITAMINS
     Indication: PRODUCT USED FOR UNKNOWN INDICATION
     Dosage: UNK UNK, QD
     Route: 065
  2. LEVONORGESTREL/ETHINYL ESTRADIOL TABLETS USP [Suspect]
     Active Substance: ETHINYL ESTRADIOL\LEVONORGESTREL
     Indication: ENDOMETRIOSIS
     Dosage: 1 DOSAGE FORM, OD (ONCE A DAY, DAILY AT THE SAME TIME)
     Route: 048
     Dates: start: 202003

REACTIONS (2)
  - Product use in unapproved indication [Unknown]
  - Metrorrhagia [Not Recovered/Not Resolved]

NARRATIVE: CASE EVENT DATE: 202003
